FAERS Safety Report 15223508 (Version 1)
Quarter: 2018Q3

REPORT INFORMATION
  Report Type: Spontaneous
  Country: US (occurrence: US)
  Receive Date: 20180731
  Receipt Date: 20180731
  Transmission Date: 20181010
  Serious: No
  Sender: FDA-Public Use
  Company Number: US-GE HEALTHCARE LIFE SCIENCES-2018CSU002774

PATIENT
  Age: 58 Year
  Sex: Male
  Weight: 74.83 kg

DRUGS (1)
  1. VISIPAQUE [Suspect]
     Active Substance: IODIXANOL
     Indication: INGUINAL HERNIA
     Dosage: 94 ML, SINGLE
     Route: 042
     Dates: start: 20180711, end: 20180711

REACTIONS (5)
  - Pruritus [Recovered/Resolved]
  - Sneezing [Recovered/Resolved]
  - Dizziness [Recovered/Resolved]
  - Throat tightness [Recovered/Resolved]
  - Eye irritation [Recovered/Resolved]

NARRATIVE: CASE EVENT DATE: 20180711
